FAERS Safety Report 11096815 (Version 1)
Quarter: 2015Q2

REPORT INFORMATION
  Report Type: Spontaneous
  Country: US (occurrence: None)
  Receive Date: 20150505
  Receipt Date: 20150505
  Transmission Date: 20150821
  Serious: Yes (Disabling, Other)
  Sender: FDA-Public Use
  Company Number: US-H14001-15-00644

PATIENT
  Age: 64 Year
  Sex: Male

DRUGS (2)
  1. PREDNISONE (PREDNISONE) (20 MILLIGRAM, TABLETS) (PREDNISONE) [Suspect]
     Active Substance: PREDNISONE
     Indication: RHEUMATOID ARTHRITIS
     Route: 048
     Dates: start: 20131009, end: 20140603
  2. BLOOD PRESSURE MEDICATION (ALL OTHER THERAPEUTIC PRODUCES) [Concomitant]

REACTIONS (16)
  - Irritability [None]
  - Screaming [None]
  - Confusional state [None]
  - Blister [None]
  - Accidental overdose [None]
  - Headache [None]
  - Aggression [None]
  - Anger [None]
  - Pain [None]
  - Impaired work ability [None]
  - Depression [None]
  - Rash [None]
  - Mobility decreased [None]
  - Skin discolouration [None]
  - Drug dispensing error [None]
  - Peripheral swelling [None]

NARRATIVE: CASE EVENT DATE: 2013
